FAERS Safety Report 6123329-8 (Version None)
Quarter: 2009Q1

REPORT INFORMATION
  Report Type: 
  Country: None (occurrence: None)
  Receive Date: 20090318
  Receipt Date: 20090304
  Transmission Date: 20090719
  Serious: Yes (Other)
  Sender: FDA-Public Use
  Company Number: DE-PFIZER INC-2009177713

PATIENT

DRUGS (1)
  1. CLINDAMYCIN HCL [Suspect]
     Dosage: 600 MG, 2X/DAY
     Route: 048

REACTIONS (4)
  - ERYTHEMA [None]
  - OEDEMA PERIPHERAL [None]
  - PRURITUS [None]
  - SKIN REACTION [None]
